FAERS Safety Report 6846958-2 (Version None)
Quarter: 2010Q3

REPORT INFORMATION
  Report Type: 
  Country: None (occurrence: None)
  Receive Date: 20100713
  Receipt Date: 20100629
  Transmission Date: 20110219
  Serious: Yes (Other)
  Sender: FDA-Public Use
  Company Number: B0664546A

PATIENT
  Sex: Female

DRUGS (4)
  1. PYRIMETHAMINE TAB [Suspect]
     Indication: INFECTION PROTOZOAL
  2. SULFADIAZINE [Suspect]
     Indication: INFECTION PROTOZOAL
     Dosage: 3 GRAM(S)/PER DAY
  3. CALCIUM FOLINATE (FORMULATION UNKNOWN) (CALCIUM FOLINATE) [Suspect]
     Dosage: 15 MG/PER DAY
  4. SPIRAMYCIN (FORMULATION UNKNOWN) (SPIRAMYCIN) [Suspect]
     Dosage: 3 GRAM(S)/PER DAY

REACTIONS (3)
  - DRUG EXPOSURE DURING PREGNANCY [None]
  - PLACENTAL DISORDER [None]
  - STILLBIRTH [None]
